FAERS Safety Report 8876143 (Version 1)
Quarter: 2012Q4

REPORT INFORMATION
  Report Type: Report from Study
  Country: US (occurrence: US)
  Receive Date: 20121030
  Receipt Date: 20121030
  Transmission Date: 20130627
  Serious: Yes (Hospitalization)
  Sender: FDA-Public Use
  Company Number: US-US-EMD SERONO, INC.-7169511

PATIENT
  Age: 29 None
  Sex: Female

DRUGS (1)
  1. REBIF [Suspect]
     Indication: MULTIPLE SCLEROSIS
     Route: 058
     Dates: start: 20120604

REACTIONS (4)
  - Thyroidectomy [Unknown]
  - Fall [Recovering/Resolving]
  - Retching [Recovering/Resolving]
  - Multiple sclerosis [Recovering/Resolving]
